FAERS Safety Report 8967398 (Version 2)
Quarter: 2014Q2

REPORT INFORMATION
  Report Type: Report from Study
  Country: IL (occurrence: IL)
  Receive Date: 20121214
  Receipt Date: 20131018
  Transmission Date: 20141212
  Serious: Yes (Death)
  Sender: FDA-Public Use
  Company Number: IL-PFIZER INC-2012312436

PATIENT
  Age: 60 Year
  Sex: Female

DRUGS (19)
  1. OFLOXACIN [Concomitant]
     Dosage: 200 MG, 1X/DAY
     Route: 048
     Dates: start: 20031107, end: 20031111
  2. SOLU-MEDROL [Suspect]
     Dosage: 125 MG, 1X/DAY
     Route: 042
     Dates: start: 20031101, end: 20031102
  3. SOLU-MEDROL [Suspect]
     Dosage: 500 MG, 1X/DAY
     Route: 042
     Dates: start: 20031107, end: 20031108
  4. SOLU-MEDROL [Suspect]
     Dosage: 125 MG, 1X/DAY
     Route: 042
     Dates: start: 20031109, end: 20031112
  5. PREDNISONE [Suspect]
     Indication: PROPHYLAXIS AGAINST TRANSPLANT REJECTION
     Dosage: 20 MG, 1X/DAY
     Route: 048
     Dates: start: 20031102
  6. MYCOPHENOLATE MOFETIL [Suspect]
     Indication: PROPHYLAXIS AGAINST TRANSPLANT REJECTION
     Dosage: 1000 MG, 2X/DAY
     Route: 048
     Dates: start: 20031101
  7. TACROLIMUS [Suspect]
     Indication: PROPHYLAXIS AGAINST TRANSPLANT REJECTION
     Dosage: 1000 MG, 2X/DAY
     Route: 048
     Dates: start: 20031101
  8. CICLOSPORIN [Suspect]
     Indication: PROPHYLAXIS AGAINST TRANSPLANT REJECTION
     Dosage: 300 MG, 2X/DAY
     Route: 048
     Dates: start: 20031102, end: 20031109
  9. CICLOSPORIN [Suspect]
     Dosage: 300 MG, 2X/DAY
     Route: 048
     Dates: start: 20031110, end: 20031113
  10. CICLOSPORIN [Suspect]
     Dosage: 300 MG, 2X/DAY
     Route: 048
     Dates: start: 20031114, end: 20031115
  11. ATG [Concomitant]
     Route: 042
  12. CO-TRIMOXAZOLE [Concomitant]
     Dosage: 1000 MG, UNK
     Route: 048
     Dates: start: 20031101
  13. INSULIN [Concomitant]
     Dosage: 10 IU, 3X/DAY
     Route: 058
     Dates: start: 20031102, end: 20031103
  14. INSULIN [Concomitant]
     Dosage: 12 IU, 3X/DAY
     Route: 042
     Dates: start: 20031104, end: 20031109
  15. INSULIN [Concomitant]
     Dosage: 60 IU, 1X/DAY
     Route: 042
     Dates: start: 20031110
  16. LEVOFLOXACIN [Concomitant]
     Dosage: UNK
     Route: 048
     Dates: start: 20031112, end: 20031123
  17. AMPICILLIN SODIUM W/SULBACTAM SODIUM [Concomitant]
     Dosage: 1000 MG, 4X/DAY
     Route: 042
     Dates: start: 20031106, end: 20031111
  18. CEFTRIAXONE [Concomitant]
     Dosage: 1000 MG, 1X/DAY
     Route: 042
     Dates: start: 20031106, end: 20031111
  19. HEPARIN [Concomitant]
     Dosage: 5000 MG, 2X/DAY
     Route: 058
     Dates: start: 20031101

REACTIONS (1)
  - Death [Fatal]
